FAERS Safety Report 11478452 (Version 1)
Quarter: 2015Q3

REPORT INFORMATION
  Report Type: Spontaneous
  Country: US (occurrence: US)
  Receive Date: 20150909
  Receipt Date: 20150909
  Transmission Date: 20151125
  Serious: No
  Sender: FDA-Public Use
  Company Number: US-JAZZ-2015-US-007794

PATIENT
  Age: 13 Year
  Sex: Female
  Weight: 68.27 kg

DRUGS (4)
  1. MIDOL [Concomitant]
     Active Substance: IBUPROFEN
     Indication: POLYMENORRHOEA
     Dosage: AS NEEDED
     Dates: start: 20150403
  2. XYREM [Suspect]
     Active Substance: SODIUM OXYBATE
     Indication: NARCOLEPSY
     Dosage: 2.25 G, QD
     Route: 048
     Dates: start: 201504, end: 2015
  3. XYREM [Suspect]
     Active Substance: SODIUM OXYBATE
     Dosage: DOSE ADJUSTMENTS
     Route: 048
  4. XYREM [Suspect]
     Active Substance: SODIUM OXYBATE
     Dosage: 3.75 G, BID
     Route: 048
     Dates: start: 201504

REACTIONS (14)
  - Abdominal pain upper [Recovered/Resolved]
  - Stress [Unknown]
  - Somnolence [Unknown]
  - Nausea [Unknown]
  - Asthenia [Unknown]
  - Dysmenorrhoea [Unknown]
  - Hunger [Unknown]
  - Agitation [Unknown]
  - Fall [Recovered/Resolved]
  - Decreased appetite [Unknown]
  - Tension [Unknown]
  - Weight decreased [Unknown]
  - Crying [Unknown]
  - Premenstrual syndrome [Unknown]

NARRATIVE: CASE EVENT DATE: 201504
